FAERS Safety Report 24391020 (Version 1)
Quarter: 2024Q4

REPORT INFORMATION
  Report Type: Spontaneous
  Country: GB (occurrence: GB)
  Receive Date: 20241003
  Receipt Date: 20241003
  Transmission Date: 20250115
  Serious: No
  Sender: ALKEM
  Company Number: None

PATIENT
  Age: 83 Year
  Sex: Male

DRUGS (4)
  1. FINASTERIDE [Interacting]
     Active Substance: FINASTERIDE
     Indication: Product used for unknown indication
     Dosage: UNK
     Route: 065
  2. TAMSULOSIN HYDROCHLORIDE [Interacting]
     Active Substance: TAMSULOSIN HYDROCHLORIDE
     Indication: Product used for unknown indication
     Dosage: UNK
     Route: 065
  3. TACROLIMUS [Suspect]
     Active Substance: TACROLIMUS
     Indication: Rash
     Dosage: UNK, QD (OINTMENT)
     Route: 065
     Dates: start: 20230620
  4. EDOXABAN TOSYLATE [Interacting]
     Active Substance: EDOXABAN TOSYLATE
     Indication: Thrombosis prophylaxis
     Dosage: 60 MILLIGRAM (TABLET)
     Route: 065
     Dates: start: 20221006, end: 20221204

REACTIONS (17)
  - Peripheral swelling [Recovering/Resolving]
  - Insomnia [Recovering/Resolving]
  - Lethargy [Recovering/Resolving]
  - Nausea [Recovering/Resolving]
  - Decreased appetite [Recovering/Resolving]
  - Erythropsia [Recovering/Resolving]
  - Quality of life decreased [Unknown]
  - Haemorrhage [Recovering/Resolving]
  - Memory impairment [Recovered/Resolved]
  - Dysuria [Unknown]
  - Drug interaction [Unknown]
  - Pruritus [Recovering/Resolving]
  - Pruritus [Recovering/Resolving]
  - Rash [Recovered/Resolved]
  - Rash [Recovering/Resolving]
  - Rash [Recovering/Resolving]
  - Therapy non-responder [Unknown]

NARRATIVE: CASE EVENT DATE: 20221201
